FAERS Safety Report 4939445-X (Version None)
Quarter: 2006Q1

REPORT INFORMATION
  Report Type: 
  Country: None (occurrence: None)
  Receive Date: 20060310
  Receipt Date: 20040921
  Transmission Date: 20060701
  Serious: Yes (Hospitalization)
  Sender: FDA-Public Use
  Company Number: NL-ABBOTT-04P-114-0274364-03

PATIENT
  Sex: Male
  Weight: 70 kg

DRUGS (8)
  1. HUMIRA [Suspect]
     Indication: RHEUMATOID ARTHRITIS
     Route: 058
     Dates: start: 20000907
  2. PREDNISONE [Concomitant]
     Indication: RHEUMATOID ARTHRITIS
     Route: 048
     Dates: start: 20040225
  3. PREDNISONE [Concomitant]
     Route: 048
     Dates: start: 20040226
  4. OOGDRUPPELS SIMPLEX [Concomitant]
     Indication: KERATITIS
     Dates: start: 19990930
  5. VIDISIC [Concomitant]
     Indication: KERATITIS
     Dates: start: 20010101
  6. CHLORAMPHENICOL [Concomitant]
     Indication: KERATITIS
     Dates: start: 20011114
  7. TRAMADOL HCL [Concomitant]
     Indication: RHEUMATOID ARTHRITIS
     Route: 048
     Dates: start: 19990930
  8. NAPROXEN [Concomitant]
     Indication: RHEUMATOID ARTHRITIS
     Route: 048
     Dates: start: 19990403

REACTIONS (1)
  - CORNEAL PERFORATION [None]
